FAERS Safety Report 7214210-1 (Version None)
Quarter: 2010Q4

REPORT INFORMATION
  Report Type: 
  Country: None (occurrence: None)
  Receive Date: 20101226
  Receipt Date: 20100503
  Transmission Date: 20110411
  Serious: Yes (Disabling, Other)
  Sender: FDA-Public Use
  Company Number: WAES 1005USA00208

PATIENT
  Age: 61 Year
  Sex: Female

DRUGS (8)
  1. FOSAMAX [Suspect]
     Dosage: 70 MG/WKY/PO
     Route: 048
     Dates: start: 20090601, end: 20100405
  2. ASCORBIC ACID [Concomitant]
  3. CALCIUM (UNSPECIFIED) [Concomitant]
  4. GLUCOSAMINE [Concomitant]
  5. VITAMIN D (UNSPECIFIED) [Concomitant]
  6. VITAMIN E [Concomitant]
  7. VITAMINS (UNSPECIFIED) [Concomitant]
  8. XANTHOPHYLL [Concomitant]

REACTIONS (1)
  - OSTEONECROSIS OF JAW [None]
